FAERS Safety Report 21363495 (Version 1)
Quarter: 2022Q3

REPORT INFORMATION
  Report Type: Spontaneous
  Country: DE (occurrence: DE)
  Receive Date: 20220922
  Receipt Date: 20220922
  Transmission Date: 20221026
  Serious: Yes (Hospitalization, Other)
  Sender: FDA-Public Use
  Company Number: None

PATIENT
  Age: 81 Year
  Sex: Male
  Weight: 73 kg

DRUGS (15)
  1. ROFLUMILAST [Suspect]
     Active Substance: ROFLUMILAST
     Indication: Product used for unknown indication
     Dosage: UNKNOWN
     Route: 048
  2. ASPIRIN [Suspect]
     Active Substance: ASPIRIN
     Indication: Product used for unknown indication
     Dosage: 100 MG, 0-1-0-0
     Route: 048
  3. Aclidinium bromide/Formoterol [Concomitant]
     Indication: Product used for unknown indication
     Dosage: 400|12 G, 1-0-1-0
     Route: 055
  4. BUDESONIDE [Concomitant]
     Active Substance: BUDESONIDE
     Indication: Product used for unknown indication
     Dosage: 0.2 MG, 1-0-1-0
     Route: 055
  5. CAPROS [Concomitant]
     Indication: Product used for unknown indication
     Dosage: 30 MG, 1-0-1-0
     Route: 048
  6. DIMETHICONE [Concomitant]
     Active Substance: DIMETHICONE
     Indication: Product used for unknown indication
     Dosage: 64 MG/ML, 2-2-2-0,
     Route: 048
  7. DUTASTERIDE\TAMSULOSIN HYDROCHLORIDE [Concomitant]
     Active Substance: DUTASTERIDE\TAMSULOSIN HYDROCHLORIDE
     Indication: Product used for unknown indication
     Dosage: 0.5|0.4 MG, 1-0-0-0
     Route: 048
  8. FERRO-SANOL DUODENAL [Concomitant]
     Active Substance: FERROUS GLYCINE SULFATE
     Indication: Product used for unknown indication
     Dosage: 50 MG, 2-0-0-0
     Route: 048
  9. LACTULOSE [Concomitant]
     Active Substance: LACTULOSE
     Indication: Product used for unknown indication
     Dosage: 3.335 G/5ML, 1-1-0-0
     Route: 048
  10. LORAZEPAM [Concomitant]
     Active Substance: LORAZEPAM
     Indication: Product used for unknown indication
     Dosage: 1 MG
     Route: 048
  11. Macrogol Elektrolyte [Concomitant]
     Indication: Product used for unknown indication
     Dosage: 1-1-0-0
     Route: 048
  12. MORPHINE [Concomitant]
     Active Substance: MORPHINE
     Indication: Product used for unknown indication
     Dosage: 20 MG/ML
     Route: 048
  13. PANTOPRAZOLE [Concomitant]
     Active Substance: PANTOPRAZOLE
     Indication: Product used for unknown indication
     Dosage: 40 MG, 1-0-0-0
     Route: 048
  14. RAMIPRIL [Concomitant]
     Active Substance: RAMIPRIL
     Indication: Product used for unknown indication
     Dosage: 5 MG, 1-0-0-0
     Route: 048
  15. TORSEMIDE [Concomitant]
     Active Substance: TORSEMIDE
     Indication: Product used for unknown indication
     Dosage: 5 MG, 1-0-0-0
     Route: 048

REACTIONS (6)
  - Muscular weakness [Unknown]
  - Anaemia [Unknown]
  - Genital haemorrhage [Unknown]
  - Asthenia [Unknown]
  - Diarrhoea [Unknown]
  - Haematochezia [Unknown]
